FAERS Safety Report 8997299 (Version 1)
Quarter: 2013Q1

REPORT INFORMATION
  Report Type: Spontaneous
  Country: US (occurrence: US)
  Receive Date: 20130104
  Receipt Date: 20130104
  Transmission Date: 20140127
  Serious: No
  Sender: FDA-Public Use
  Company Number: US-009507513-1301USA000480

PATIENT
  Sex: Female

DRUGS (2)
  1. COZAAR [Suspect]
     Indication: BLOOD PRESSURE ABNORMAL
     Dosage: 50 MG, UNK
  2. COZAAR [Suspect]
     Dosage: 100 MG, UNK

REACTIONS (2)
  - Dizziness [Unknown]
  - Drug ineffective [Unknown]
